FAERS Safety Report 9056523 (Version 1)
Quarter: 2013Q1

REPORT INFORMATION
  Report Type: Spontaneous
  Country: MX (occurrence: MX)
  Receive Date: 20130204
  Receipt Date: 20130204
  Transmission Date: 20140127
  Serious: Yes (Death)
  Sender: FDA-Public Use
  Company Number: MX-GLAXOSMITHKLINE-A1010562A

PATIENT
  Age: 73 None
  Sex: Male
  Weight: 70 kg

DRUGS (6)
  1. SERETIDE [Suspect]
     Indication: CHRONIC OBSTRUCTIVE PULMONARY DISEASE
     Dosage: 2PUFF TWICE PER DAY
     Route: 055
     Dates: start: 201109, end: 20121026
  2. ALZAM [Concomitant]
  3. FUROSEMIDE [Concomitant]
  4. OMEPRAZOLE [Concomitant]
  5. SPIRIVA [Concomitant]
  6. METICORTEN [Concomitant]

REACTIONS (1)
  - Cardio-respiratory arrest [Fatal]
